FAERS Safety Report 25761182 (Version 1)
Quarter: 2025Q3

REPORT INFORMATION
  Report Type: Spontaneous
  Country: US (occurrence: US)
  Receive Date: 20250904
  Receipt Date: 20250904
  Transmission Date: 20251021
  Serious: No
  Sender: BAYER HEALTHCARE LLC
  Company Number: US-BAYER-2025A117137

PATIENT
  Sex: Female

DRUGS (1)
  1. MIRALAX [Suspect]
     Active Substance: POLYETHYLENE GLYCOL 3350
     Indication: Colonoscopy
     Dosage: 1 DF, QD,8.3OZ OF MIRALAX TO BE MIXED WITH GATORADE
     Route: 048

REACTIONS (2)
  - Product prescribing issue [Unknown]
  - Product use in unapproved indication [None]
